FAERS Safety Report 9908432 (Version 3)
Quarter: 2014Q1

REPORT INFORMATION
  Report Type: Spontaneous
  Country: US (occurrence: US)
  Receive Date: 20140219
  Receipt Date: 20140331
  Transmission Date: 20141002
  Serious: Yes (Other)
  Sender: FDA-Public Use
  Company Number: US-MALLINCKRODT-T201401307

PATIENT
  Sex: Female

DRUGS (9)
  1. METHADONE [Suspect]
     Indication: PAIN
     Dosage: 10 MG, TID
     Route: 048
     Dates: end: 201312
  2. METHADONE [Suspect]
     Dosage: 1/2 TAB PER DAY
     Route: 048
     Dates: start: 201312
  3. XANAX [Concomitant]
     Indication: PRODUCT USED FOR UNKNOWN INDICATION
     Dosage: 1 MG, BID
     Route: 048
     Dates: start: 2008
  4. ZOLOFT [Concomitant]
     Indication: OBSESSIVE-COMPULSIVE DISORDER
     Dosage: 300 MG, QD
     Route: 048
     Dates: start: 2012
  5. ELAVIL [Concomitant]
     Indication: OBSESSIVE-COMPULSIVE DISORDER
     Dosage: 200 MG, HS
     Route: 048
  6. METFORMIN [Concomitant]
     Indication: DIABETES MELLITUS
     Dosage: 500 MG, QD
     Route: 048
  7. ANAFRANIL [Concomitant]
     Indication: DIABETES MELLITUS
     Dosage: 5 MG, QD
     Route: 048
  8. BACLOFEN [Concomitant]
     Indication: PAIN
     Dosage: 20 MG, TID
     Route: 048
  9. ESTROGEN NOS W/METHYLTESTOSTERONE [Concomitant]
     Indication: MENOPAUSE
     Dosage: 1 TAB HS
     Route: 048

REACTIONS (2)
  - Memory impairment [Not Recovered/Not Resolved]
  - Confusional state [Not Recovered/Not Resolved]
